FAERS Safety Report 15807347 (Version 2)
Quarter: 2019Q1

REPORT INFORMATION
  Report Type: Spontaneous
  Country: US (occurrence: US)
  Receive Date: 20190110
  Receipt Date: 20190215
  Transmission Date: 20190417
  Serious: No
  Sender: FDA-Public Use
  Company Number: US-SUNOVION-2019SUN000020

PATIENT

DRUGS (2)
  1. LATUDA [Suspect]
     Active Substance: LURASIDONE HYDROCHLORIDE
     Indication: DEPRESSION
     Dosage: 60 UNK
     Route: 048
  2. LATUDA [Interacting]
     Active Substance: LURASIDONE HYDROCHLORIDE
     Dosage: 40 UNK
     Route: 048

REACTIONS (6)
  - Hypersomnia [Unknown]
  - Feeling abnormal [Unknown]
  - Alcohol interaction [Unknown]
  - Nausea [Unknown]
  - Malaise [Unknown]
  - Off label use [Unknown]
